FAERS Safety Report 4845922-2 (Version None)
Quarter: 2005Q4

REPORT INFORMATION
  Report Type: 
  Country: None (occurrence: None)
  Receive Date: 20051201
  Receipt Date: 20051122
  Transmission Date: 20060501
  Serious: Yes (Life-Threatening, Hospitalization, Other)
  Sender: FDA-Public Use
  Company Number: 2005-11-0023

PATIENT
  Age: 62 Year
  Sex: Male
  Weight: 72 kg

DRUGS (3)
  1. PEG-INTRON [Suspect]
     Indication: HEPATITIS C
     Dosage: 100 MCG QW
     Dates: start: 20050125, end: 20050830
  2. REBETOL [Suspect]
     Indication: HEPATITIS C
     Dosage: 800 MG ORAL
     Route: 048
     Dates: start: 20050125, end: 20050830
  3. CONTRAST DYE [Suspect]
     Indication: COMPUTERISED TOMOGRAM
     Dates: start: 20051020, end: 20051020

REACTIONS (12)
  - ACUTE RESPIRATORY DISTRESS SYNDROME [None]
  - ACUTE RESPIRATORY FAILURE [None]
  - BLOOD COUNT ABNORMAL [None]
  - COUGH [None]
  - HAEMOPTYSIS [None]
  - HEPATIC ENCEPHALOPATHY [None]
  - HEPATIC NEOPLASM [None]
  - HEPATIC NEOPLASM MALIGNANT [None]
  - INTERSTITIAL LUNG DISEASE [None]
  - MALAISE [None]
  - PANCREATITIS CHRONIC [None]
  - SYSTEMIC INFLAMMATORY RESPONSE SYNDROME [None]
